FAERS Safety Report 13076793 (Version 1)
Quarter: 2016Q4

REPORT INFORMATION
  Report Type: Spontaneous
  Country: US (occurrence: US)
  Receive Date: 20161230
  Receipt Date: 20161230
  Transmission Date: 20170207
  Serious: Yes (Other)
  Sender: FDA-Public Use
  Company Number: None

PATIENT
  Age: 59 Year
  Sex: Female

DRUGS (1)
  1. LOSARTAN/HCT TAB 100-25 BATCH LH [Suspect]
     Active Substance: HYDROCHLOROTHIAZIDE\LOSARTAN POTASSIUM
     Indication: HYPERTENSION
     Dosage: ?          QUANTITY:1 TABLET(S);?
     Route: 048
     Dates: start: 20161003, end: 20161226

REACTIONS (8)
  - Lip swelling [None]
  - Paraesthesia [None]
  - Vision blurred [None]
  - Urticaria [None]
  - Eye swelling [None]
  - Product substitution issue [None]
  - Pharyngeal oedema [None]
  - Insomnia [None]

NARRATIVE: CASE EVENT DATE: 20161217
